FAERS Safety Report 6682569-X (Version None)
Quarter: 2010Q2

REPORT INFORMATION
  Report Type: 
  Country: None (occurrence: None)
  Receive Date: 20100414
  Receipt Date: 20100414
  Transmission Date: 20101027
  Serious: Yes (Disabling)
  Sender: FDA-Public Use
  Company Number: None

PATIENT
  Age: 37 Year
  Sex: Female
  Weight: 86.1834 kg

DRUGS (1)
  1. MIRENA [Suspect]
     Indication: CONTRACEPTION
     Dates: start: 20100203, end: 20100324

REACTIONS (4)
  - BACK PAIN [None]
  - MEDICAL DEVICE COMPLICATION [None]
  - PAIN [None]
  - VAGINAL HAEMORRHAGE [None]
